FAERS Safety Report 5793664-1 (Version None)
Quarter: 2008Q2

REPORT INFORMATION
  Report Type: 
  Country: None (occurrence: None)
  Receive Date: 20080627
  Receipt Date: 20080620
  Transmission Date: 20081010
  Serious: Yes (Hospitalization, Other)
  Sender: FDA-Public Use
  Company Number: US-AMGEN-QUU288867

PATIENT
  Sex: Female

DRUGS (5)
  1. NEULASTA [Suspect]
     Indication: CHEMOTHERAPY
     Route: 065
     Dates: start: 20080319
  2. TAXOTERE [Concomitant]
  3. CYTOXAN [Concomitant]
  4. FLECAINIDE ACETATE [Concomitant]
  5. CLARITIN [Concomitant]

REACTIONS (11)
  - ABDOMINAL PAIN [None]
  - APNOEA [None]
  - BONE PAIN [None]
  - DEHYDRATION [None]
  - HEADACHE [None]
  - HEART RATE INCREASED [None]
  - LOSS OF CONSCIOUSNESS [None]
  - PALPITATIONS [None]
  - PYREXIA [None]
  - RESPIRATORY DISTRESS [None]
  - TEMPERATURE REGULATION DISORDER [None]
